FAERS Safety Report 7325361-5 (Version None)
Quarter: 2011Q1

REPORT INFORMATION
  Report Type: 
  Country: None (occurrence: None)
  Receive Date: 20110218
  Receipt Date: 20110203
  Transmission Date: 20110831
  Serious: Yes (Other)
  Sender: FDA-Public Use
  Company Number: AUR-APL-2011-00497

PATIENT
  Age: 40 Year
  Sex: Female
  Weight: 82 kg

DRUGS (3)
  1. RISPERDONE [Suspect]
     Indication: BIPOLAR DISORDER
     Dosage: SEE IMAGE
     Dates: start: 20070501, end: 20071201
  2. RISPERDONE [Suspect]
     Indication: BIPOLAR DISORDER
     Dosage: SEE IMAGE
     Dates: start: 20071201, end: 20080101
  3. RISPERDONE [Suspect]
     Indication: BIPOLAR DISORDER
     Dosage: SEE IMAGE
     Dates: start: 20030101, end: 20040201

REACTIONS (6)
  - MENTAL DISORDER [None]
  - BREAST FEEDING [None]
  - SEDATION [None]
  - PSYCHOTIC DISORDER [None]
  - PREGNANCY [None]
  - DRUG EXPOSURE DURING PREGNANCY [None]
